FAERS Safety Report 5661359-0 (Version None)
Quarter: 2008Q1

REPORT INFORMATION
  Report Type: 
  Country: None (occurrence: None)
  Receive Date: 20080306
  Receipt Date: 20080204
  Transmission Date: 20080703
  Serious: Yes (Other)
  Sender: FDA-Public Use
  Company Number: 2008S1001786

PATIENT
  Age: 4 Hour
  Sex: Female

DRUGS (1)
  1. ACYCLOVIR [Suspect]
     Indication: HERPES SIMPLEX
     Dosage: 60 MG/KG;INTRAVENOUS;3 TIMES A DAY
     Route: 042

REACTIONS (14)
  - ABDOMINAL DISTENSION [None]
  - CSF VIRUS IDENTIFIED [None]
  - DRUG EXPOSURE DURING PREGNANCY [None]
  - GASTROINTESTINAL PERFORATION [None]
  - GENITAL HERPES [None]
  - HEPATIC FAILURE [None]
  - HERPES OPHTHALMIC [None]
  - HERPES PHARYNGITIS [None]
  - NECROTISING ENTEROCOLITIS NEONATAL [None]
  - PAIN [None]
  - PNEUMATOSIS INTESTINALIS [None]
  - RECTAL HAEMORRHAGE [None]
  - TRANSAMINASES INCREASED [None]
  - VOMITING NEONATAL [None]
